FAERS Safety Report 21054692 (Version 1)
Quarter: 2022Q3

REPORT INFORMATION
  Report Type: Spontaneous
  Country: US (occurrence: US)
  Receive Date: 20220707
  Receipt Date: 20220707
  Transmission Date: 20221026
  Serious: No
  Sender: FDA-Public Use
  Company Number: US-JUBILANT CADISTA PHARMACEUTICALS-2022JUB00026

PATIENT
  Sex: Female

DRUGS (1)
  1. PREDNISONE [Suspect]
     Active Substance: PREDNISONE
     Indication: Vasculitis
     Dosage: 5 MG, 1X/DAY

REACTIONS (4)
  - Visual impairment [Unknown]
  - Myalgia [Unknown]
  - Headache [Unknown]
  - Drug ineffective for unapproved indication [Not Recovered/Not Resolved]
